FAERS Safety Report 25147149 (Version 1)
Quarter: 2025Q2

REPORT INFORMATION
  Report Type: Spontaneous
  Country: JP (occurrence: JP)
  Receive Date: 20250401
  Receipt Date: 20250401
  Transmission Date: 20250716
  Serious: Yes (Death, Other)
  Sender: EISAI
  Company Number: JP-Eisai Medical Research-EC-2019-064499

PATIENT
  Age: 78 Year
  Sex: Female
  Weight: 53 kg

DRUGS (7)
  1. LENVIMA [Suspect]
     Active Substance: LENVATINIB
     Indication: Hepatocellular carcinoma
     Dates: start: 20180807, end: 201810
  2. LENVIMA [Suspect]
     Active Substance: LENVATINIB
     Dates: start: 2019, end: 20190916
  3. RABEPRAZOLE SODIUM [Concomitant]
     Active Substance: RABEPRAZOLE SODIUM
     Indication: Product used for unknown indication
  4. SPIRONOLACTONE [Concomitant]
     Active Substance: SPIRONOLACTONE
     Indication: Product used for unknown indication
  5. LEVOTHYROXINE SODIUM [Concomitant]
     Active Substance: LEVOTHYROXINE SODIUM
     Indication: Product used for unknown indication
  6. BIO-THREE [Concomitant]
     Active Substance: HERBALS
     Indication: Product used for unknown indication
  7. KETOPROFEN [Concomitant]
     Active Substance: KETOPROFEN
     Indication: Abdominal pain

REACTIONS (5)
  - Sepsis [Fatal]
  - Large intestine perforation [Fatal]
  - Ovarian cyst [Unknown]
  - Abdominal pain [Unknown]
  - Proteinuria [Unknown]

NARRATIVE: CASE EVENT DATE: 20181001
